FAERS Safety Report 18767922 (Version 1)
Quarter: 2021Q1

REPORT INFORMATION
  Report Type: Spontaneous
  Country: US (occurrence: US)
  Receive Date: 20210121
  Receipt Date: 20210121
  Transmission Date: 20210419
  Serious: Yes (Hospitalization)
  Sender: FDA-Public Use
  Company Number: US-CELLTRION-2021-US-000973

PATIENT
  Age: 89 Year
  Sex: Female

DRUGS (1)
  1. LINEZOLID TABLETS (NON?SPECIFIC) [Suspect]
     Active Substance: LINEZOLID
     Indication: WOUND INFECTION STAPHYLOCOCCAL
     Route: 065

REACTIONS (3)
  - Myelosuppression [Unknown]
  - Anaemia [Unknown]
  - Inappropriate antidiuretic hormone secretion [Recovering/Resolving]
